FAERS Safety Report 21764591 (Version 2)
Quarter: 2023Q1

REPORT INFORMATION
  Report Type: Report from Study
  Country: US (occurrence: US)
  Receive Date: 20221222
  Receipt Date: 20230324
  Transmission Date: 20230417
  Serious: Yes (Other)
  Sender: FDA-Public Use
  Company Number: US-ABBVIE-4245254

PATIENT
  Sex: Male

DRUGS (1)
  1. VENCLEXTA [Suspect]
     Active Substance: VENETOCLAX
     Indication: Chronic lymphocytic leukaemia
     Route: 048
     Dates: start: 201912

REACTIONS (13)
  - Leukaemia [Unknown]
  - Renal disorder [Unknown]
  - Ulcer [Unknown]
  - Muscle spasms [Unknown]
  - Constipation [Unknown]
  - Fluid intake reduced [Unknown]
  - Arthropathy [Unknown]
  - Insomnia [Unknown]
  - Erythema [Unknown]
  - COVID-19 [Unknown]
  - Somnolence [Unknown]
  - Coagulopathy [Unknown]
  - Papule [Unknown]
